FAERS Safety Report 17028491 (Version 2)
Quarter: 2019Q4

REPORT INFORMATION
  Report Type: Report from Study
  Country: CA (occurrence: CA)
  Receive Date: 20191113
  Receipt Date: 20191125
  Transmission Date: 20200122
  Serious: Yes (Hospitalization)
  Sender: FDA-Public Use
  Company Number: CA-HLSUS-2019-CA-001514

PATIENT
  Age: 57 Year
  Sex: Female

DRUGS (3)
  1. VITAMIN D3 [Concomitant]
     Active Substance: CHOLECALCIFEROL
  2. CLOZARIL [Suspect]
     Active Substance: CLOZAPINE
     Dosage: CURRENTLY ON 12.5 MG Q AM, 400 MG Q HS.
     Route: 048
     Dates: start: 20150827
  3. DOCUSATE [Concomitant]
     Active Substance: DOCUSATE

REACTIONS (9)
  - Medication error [Unknown]
  - Respiratory failure [Recovered/Resolved]
  - Treatment noncompliance [Unknown]
  - Loss of consciousness [Recovered/Resolved]
  - Depressed level of consciousness [Recovered/Resolved]
  - Bile output increased [Recovering/Resolving]
  - Blood potassium decreased [Recovering/Resolving]
  - Miosis [Recovering/Resolving]
  - Oxygen saturation decreased [Unknown]

NARRATIVE: CASE EVENT DATE: 20190609
